FAERS Safety Report 6762850-6 (Version None)
Quarter: 2010Q2

REPORT INFORMATION
  Report Type: 
  Country: None (occurrence: None)
  Receive Date: 20100609
  Receipt Date: 20100528
  Transmission Date: 20101027
  Serious: Yes (Other)
  Sender: FDA-Public Use
  Company Number: BR-PFIZER INC-2010066882

PATIENT
  Age: 44 Year
  Sex: Male

DRUGS (5)
  1. GEODON [Suspect]
     Indication: BIPOLAR DISORDER
     Dosage: 240 MG, 1X/DAY (THREE 80MG CAPSULES TOGETHER ONCE AT NIGHT)
     Route: 048
     Dates: start: 20080527
  2. GEODON [Suspect]
     Indication: DRUG DEPENDENCE
     Dosage: 160 MG, 1X/DAY (TWO 80MG CAPSULES ONCE DAILY)
     Route: 048
     Dates: start: 20090601, end: 20091101
  3. LEXAPRO [Concomitant]
     Dosage: UNK
     Dates: start: 20080101
  4. AKINETON [Concomitant]
     Dosage: UNK
     Dates: start: 20080101
  5. MEMANTINE [Concomitant]
     Dosage: UNK
     Dates: start: 20080101

REACTIONS (1)
  - DRUG DEPENDENCE [None]
